FAERS Safety Report 4526507-4 (Version None)
Quarter: 2004Q4

REPORT INFORMATION
  Report Type: 
  Country: None (occurrence: None)
  Receive Date: 20041214
  Receipt Date: 20041116
  Transmission Date: 20050328
  Serious: Yes (Hospitalization, Disabling, Other)
  Sender: FDA-Public Use
  Company Number: US-MERCK-0411USA02667

PATIENT
  Age: 64 Year
  Sex: Female

DRUGS (2)
  1. VYTORIN [Suspect]
     Indication: HYPERLIPIDAEMIA
     Route: 048
     Dates: start: 20040101, end: 20040101
  2. WELLBUTRIN [Concomitant]
     Route: 065
     Dates: start: 20040101

REACTIONS (2)
  - DEHYDRATION [None]
  - HEPATITIS [None]
